FAERS Safety Report 7224927-0 (Version None)
Quarter: 2011Q1

REPORT INFORMATION
  Report Type: 
  Country: None (occurrence: None)
  Receive Date: 20110103
  Receipt Date: 20101221
  Transmission Date: 20110831
  Serious: Yes (Hospitalization, Disabling, Other)
  Sender: FDA-Public Use
  Company Number: 2010AP002680

PATIENT
  Age: 36 Year
  Sex: Female

DRUGS (2)
  1. FOLIC ACID [Concomitant]
  2. TOPIRAMATE [Suspect]
     Indication: MIGRAINE
     Dosage: 150 MG; QD PO
     Route: 048
     Dates: start: 20100101, end: 20101101

REACTIONS (4)
  - DRUG EXPOSURE DURING PREGNANCY [None]
  - WITHDRAWAL SYNDROME [None]
  - BLINDNESS [None]
  - ANGLE CLOSURE GLAUCOMA [None]
